FAERS Safety Report 18977640 (Version 1)
Quarter: 2021Q1

REPORT INFORMATION
  Report Type: Spontaneous
  Country: PH (occurrence: PH)
  Receive Date: 20210306
  Receipt Date: 20210306
  Transmission Date: 20210420
  Serious: Yes (Hospitalization)
  Sender: FDA-Public Use
  Company Number: NVSC2021PH046758

PATIENT
  Sex: Male

DRUGS (1)
  1. VOTRIENT [Suspect]
     Active Substance: PAZOPANIB HYDROCHLORIDE
     Indication: NEOPLASM PROPHYLAXIS
     Dosage: 800 MG
     Route: 048
     Dates: start: 20210213, end: 20210221

REACTIONS (3)
  - Hepatomegaly [Unknown]
  - Hepatitis [Unknown]
  - Condition aggravated [Unknown]
